FAERS Safety Report 24312406 (Version 2)
Quarter: 2024Q3

REPORT INFORMATION
  Report Type: Spontaneous
  Country: US (occurrence: US)
  Receive Date: 20240912
  Receipt Date: 20240913
  Transmission Date: 20241016
  Serious: No
  Sender: NOVARTIS
  Company Number: US-002147023-NVSC2024US178837

PATIENT
  Sex: Female

DRUGS (2)
  1. COSENTYX [Suspect]
     Active Substance: SECUKINUMAB
     Indication: Product used for unknown indication
     Dosage: 300 MG, QMO (150 MG, 2 SYRINGES FOR A TOTAL OF 300MG)
     Route: 065
     Dates: start: 20240819
  2. COSENTYX [Suspect]
     Active Substance: SECUKINUMAB
     Dosage: 600 MG, QMO (300 MG, 2 SYRINGES TOTAL OF 600MG)
     Route: 065

REACTIONS (2)
  - Incorrect dose administered [Unknown]
  - Wrong dose [Unknown]
